FAERS Safety Report 5144452-0 (Version None)
Quarter: 2006Q4

REPORT INFORMATION
  Report Type: 
  Country: None (occurrence: None)
  Receive Date: 20061031
  Receipt Date: 20061019
  Transmission Date: 20070319
  Serious: Yes (Hospitalization)
  Sender: FDA-Public Use
  Company Number: MEDI-0005055

PATIENT
  Age: 15 Month

DRUGS (4)
  1. SYNAGIS [Suspect]
     Indication: ANTIVIRAL PROPHYLAXIS
     Dosage: 100 MG INTRAMUSCULAR ; 90 MG INTRAMUSCULAR ; 100 MG INTRAMUSCULAR ; 100 MG INTRAMUSCULAR
     Route: 030
     Dates: start: 20051012, end: 20060104
  2. SYNAGIS [Suspect]
     Indication: ANTIVIRAL PROPHYLAXIS
     Dosage: 100 MG INTRAMUSCULAR ; 90 MG INTRAMUSCULAR ; 100 MG INTRAMUSCULAR ; 100 MG INTRAMUSCULAR
     Route: 030
     Dates: start: 20051012
  3. SYNAGIS [Suspect]
     Indication: ANTIVIRAL PROPHYLAXIS
     Dosage: 100 MG INTRAMUSCULAR ; 90 MG INTRAMUSCULAR ; 100 MG INTRAMUSCULAR ; 100 MG INTRAMUSCULAR
     Route: 030
     Dates: start: 20051109
  4. SYNAGIS [Suspect]
     Indication: ANTIVIRAL PROPHYLAXIS
     Dosage: 100 MG INTRAMUSCULAR ; 90 MG INTRAMUSCULAR ; 100 MG INTRAMUSCULAR ; 100 MG INTRAMUSCULAR
     Route: 030
     Dates: start: 20051207

REACTIONS (2)
  - PULMONARY ARTERY STENOSIS [None]
  - VENTRICULAR SEPTAL DEFECT [None]
